FAERS Safety Report 22772258 (Version 4)
Quarter: 2024Q2

REPORT INFORMATION
  Report Type: Report from Study
  Country: US (occurrence: US)
  Receive Date: 20230801
  Receipt Date: 20240429
  Transmission Date: 20240716
  Serious: No
  Sender: FDA-Public Use
  Company Number: US-002147023-NVSC2023US167565

PATIENT
  Sex: Female

DRUGS (1)
  1. KISQALI [Suspect]
     Active Substance: RIBOCICLIB
     Indication: Breast cancer
     Dosage: 600 MG, QD
     Route: 048

REACTIONS (5)
  - Hot flush [Unknown]
  - Asthenia [Unknown]
  - Fatigue [Unknown]
  - White blood cell count decreased [Recovering/Resolving]
  - Vomiting [Unknown]
